FAERS Safety Report 4839538-1 (Version None)
Quarter: 2005Q4

REPORT INFORMATION
  Report Type: 
  Country: None (occurrence: None)
  Receive Date: 20051129
  Receipt Date: 20051118
  Transmission Date: 20060501
  Serious: Yes (Death, Hospitalization, Other)
  Sender: FDA-Public Use
  Company Number: US-MERCK-0511USA03496

PATIENT
  Sex: Female
  Weight: 77 kg

DRUGS (5)
  1. VIOXX [Suspect]
     Route: 048
     Dates: start: 20030827
  2. CELEBREX [Concomitant]
     Route: 065
  3. ACETAMINOPHEN AND CODEINE [Concomitant]
     Route: 065
  4. XANAX [Concomitant]
     Route: 065
  5. PROPRANOLOL HYDROCHLORIDE [Concomitant]
     Route: 065

REACTIONS (5)
  - CARDIO-RESPIRATORY ARREST [None]
  - CHEST PAIN [None]
  - DEATH [None]
  - DIZZINESS [None]
  - MYOCARDIAL INFARCTION [None]
